FAERS Safety Report 11319384 (Version 2)
Quarter: 2016Q1

REPORT INFORMATION
  Report Type: Report from Study
  Country: PL (occurrence: PL)
  Receive Date: 20150729
  Receipt Date: 20160225
  Transmission Date: 20160525
  Serious: No
  Sender: FDA-Public Use
  Company Number: PHHY2015PL086214

PATIENT
  Age: 63 Year
  Sex: Female
  Weight: 62 kg

DRUGS (3)
  1. TASIGNA [Suspect]
     Active Substance: NILOTINIB
     Dosage: 100 MG, BID
     Route: 048
     Dates: start: 20150521, end: 201508
  2. ATORIS [Concomitant]
     Active Substance: ATORVASTATIN CALCIUM
     Indication: BLOOD CHOLESTEROL INCREASED
     Dosage: 10 MG, QD
     Route: 048
     Dates: start: 20150219
  3. TASIGNA [Suspect]
     Active Substance: NILOTINIB
     Indication: CHRONIC MYELOID LEUKAEMIA
     Dosage: 200 MG, BID
     Route: 048
     Dates: start: 2013, end: 20150521

REACTIONS (6)
  - Hypoaesthesia [Not Recovered/Not Resolved]
  - Muscle tightness [Unknown]
  - Musculoskeletal stiffness [Not Recovered/Not Resolved]
  - Blood cholesterol increased [Recovered/Resolved]
  - Myalgia [Not Recovered/Not Resolved]
  - Arthralgia [Not Recovered/Not Resolved]

NARRATIVE: CASE EVENT DATE: 201502
